FAERS Safety Report 17531557 (Version 1)
Quarter: 2020Q1

REPORT INFORMATION
  Report Type: Spontaneous
  Country: GB (occurrence: GB)
  Receive Date: 20200312
  Receipt Date: 20200312
  Transmission Date: 20200409
  Serious: Yes (Hospitalization, Other)
  Sender: FDA-Public Use
  Company Number: GB-MICRO LABS LIMITED-ML2020-00680

PATIENT
  Age: 79 Year
  Sex: Male

DRUGS (6)
  1. TAMSULOSIN [Concomitant]
     Active Substance: TAMSULOSIN
     Dosage: MORNING
  2. LOSARTAN. [Suspect]
     Active Substance: LOSARTAN
     Route: 048
     Dates: end: 20190715
  3. METFORMIN [Concomitant]
     Active Substance: METFORMIN HYDROCHLORIDE
  4. CITALOPRAM [Concomitant]
     Active Substance: CITALOPRAM HYDROBROMIDE
     Dosage: MORNING
  5. AMLODIPINE [Concomitant]
     Active Substance: AMLODIPINE BESYLATE
  6. SAXAGLIPTIN [Concomitant]
     Active Substance: SAXAGLIPTIN

REACTIONS (5)
  - Dysarthria [Unknown]
  - Acute kidney injury [Recovered/Resolved with Sequelae]
  - Confusional state [Unknown]
  - Urosepsis [Unknown]
  - Suprapubic pain [Unknown]

NARRATIVE: CASE EVENT DATE: 20190717
